FAERS Safety Report 15880361 (Version 1)
Quarter: 2019Q1

REPORT INFORMATION
  Report Type: Spontaneous
  Country: US (occurrence: US)
  Receive Date: 20190128
  Receipt Date: 20190128
  Transmission Date: 20190417
  Serious: Yes (Other)
  Sender: FDA-Public Use
  Company Number: None

PATIENT
  Age: 9 Year
  Sex: Male

DRUGS (3)
  1. IRON [Concomitant]
     Active Substance: IRON
  2. NUBAIN [Suspect]
     Active Substance: NALBUPHINE HYDROCHLORIDE
     Indication: PAIN
     Dosage: ?          QUANTITY:1 INJECTION(S);?
     Route: 042
     Dates: start: 20171219, end: 20171219
  3. VITAMIN C [Concomitant]
     Active Substance: ASCORBIC ACID

REACTIONS (4)
  - Cyanosis [None]
  - Loss of consciousness [None]
  - Body temperature decreased [None]
  - Seizure [None]

NARRATIVE: CASE EVENT DATE: 20171219
